FAERS Safety Report 15601505 (Version 2)
Quarter: 2019Q1

REPORT INFORMATION
  Report Type: Spontaneous
  Country: US (occurrence: US)
  Receive Date: 20181109
  Receipt Date: 20190301
  Transmission Date: 20190417
  Serious: No
  Sender: FDA-Public Use
  Company Number: US-PFIZER INC-2018454605

PATIENT
  Age: 72 Year
  Sex: Female
  Weight: 86.18 kg

DRUGS (1)
  1. GABAPENTIN. [Suspect]
     Active Substance: GABAPENTIN
     Dosage: UNK

REACTIONS (4)
  - Feeling abnormal [Unknown]
  - Drug hypersensitivity [Unknown]
  - Fall [Unknown]
  - Somnolence [Unknown]

NARRATIVE: CASE EVENT DATE: 2018
